FAERS Safety Report 9854098 (Version 4)
Quarter: 2015Q2

REPORT INFORMATION
  Report Type: Report from Study
  Country: JP (occurrence: JP)
  Receive Date: 20140129
  Receipt Date: 20150526
  Transmission Date: 20150821
  Serious: Yes (Hospitalization)
  Sender: FDA-Public Use
  Company Number: JP-AMGEN-JPNCT2014006010

PATIENT
  Age: 74 Year
  Sex: Male
  Weight: 49 kg

DRUGS (17)
  1. DENOSUMAB [Suspect]
     Active Substance: DENOSUMAB
     Indication: METASTASES TO BONE
     Dosage: 120 MG, UNK
     Route: 058
     Dates: start: 20130529, end: 20131021
  2. DENOTAS [Concomitant]
     Active Substance: CALCIUM CARBONATE\CHOLECALCIFEROL\MAGNESIUM CARBONATE
     Dosage: 2 DF, QD
     Route: 048
     Dates: start: 20131021, end: 20131107
  3. LOXONIN [Concomitant]
     Active Substance: LOXOPROFEN SODIUM
     Dosage: 60 MG, AS NECESSARY
     Route: 048
     Dates: start: 20131009
  4. CALCIUM LACTATE [Concomitant]
     Active Substance: CALCIUM LACTATE
     Dosage: 2 G, QD
     Route: 048
     Dates: start: 20130626
  5. LOXOPROFEN [Concomitant]
     Active Substance: LOXOPROFEN
     Dosage: 60 MG, AS NECESSARY
     Route: 048
     Dates: start: 20131009
  6. PREDONINE [Concomitant]
     Active Substance: PREDNISOLONE\PREDNISOLONE ACETATE\PREDNISOLONE SODIUM SUCCINATE
     Dosage: UNK
     Route: 065
     Dates: start: 20130508, end: 20130515
  7. TAXOTERE [Concomitant]
     Active Substance: DOCETAXEL
     Dosage: UNK
     Route: 065
     Dates: start: 20130508
  8. OXYCONTIN [Concomitant]
     Active Substance: OXYCODONE HYDROCHLORIDE
     Dosage: 20 MG, QD
     Route: 048
     Dates: start: 20130503, end: 20130612
  9. LEUPLIN [Concomitant]
     Active Substance: LEUPROLIDE ACETATE
     Dosage: UNK
     Route: 065
     Dates: start: 20130227
  10. ESTRACYT                           /00327002/ [Concomitant]
     Active Substance: ESTRAMUSTINE PHOSPHATE SODIUM
     Dosage: UNK
     Route: 065
     Dates: start: 20130724
  11. OPSO [Concomitant]
     Active Substance: MORPHINE HYDROCHLORIDE
     Dosage: 10 MG, AS NECESSARY
     Route: 048
     Dates: start: 20130928, end: 20131008
  12. ANPEC                              /00036303/ [Concomitant]
     Dosage: 10 MG, QD
     Route: 050
     Dates: start: 20131010
  13. ZOMETA [Concomitant]
     Active Substance: ZOLEDRONIC ACID
     Indication: PRODUCT USED FOR UNKNOWN INDICATION
     Dosage: 4 MG, TID
     Route: 042
     Dates: start: 20130306, end: 20130821
  14. FENTOS [Concomitant]
     Active Substance: FENTANYL
     Dosage: 4 MG, QD
     Route: 050
     Dates: start: 20130511
  15. CASODEX [Concomitant]
     Active Substance: BICALUTAMIDE
     Dosage: UNK
     Route: 065
     Dates: start: 20130216, end: 20130528
  16. DECADRON [Concomitant]
     Active Substance: DEXAMETHASONE
     Dosage: UNK
     Route: 065
     Dates: start: 20130529, end: 20130909
  17. FENTANYL CITRATE. [Concomitant]
     Active Substance: FENTANYL CITRATE
     Dosage: 1 MG, QD
     Route: 050
     Dates: start: 20130511, end: 20131008

REACTIONS (5)
  - Pain [Not Recovered/Not Resolved]
  - Hypocalcaemia [Recovered/Resolved]
  - Osteonecrosis of jaw [Recovering/Resolving]
  - Osteonecrosis of jaw [Not Recovered/Not Resolved]
  - Hypocalcaemia [Recovering/Resolving]

NARRATIVE: CASE EVENT DATE: 20130612
